FAERS Safety Report 14349575 (Version 2)
Quarter: 2018Q1

REPORT INFORMATION
  Report Type: Report from Study
  Country: DE (occurrence: DE)
  Receive Date: 20180104
  Receipt Date: 20180212
  Transmission Date: 20180509
  Serious: Yes (Other)
  Sender: FDA-Public Use
  Company Number: DE-INCYTE CORPORATION-2017IN011195

PATIENT

DRUGS (20)
  1. MOXIFLOXACINE [Concomitant]
     Active Substance: MOXIFLOXACIN
     Indication: PROPHYLAXIS
     Dosage: 400 MG, UNK
     Route: 065
     Dates: start: 20170608
  2. INCB018424 [Suspect]
     Active Substance: RUXOLITINIB
     Indication: PRIMARY MYELOFIBROSIS
     Dosage: 20 MG/DAY/TWICE
     Route: 048
     Dates: start: 20160126, end: 20160405
  3. INCB018424 [Suspect]
     Active Substance: RUXOLITINIB
     Dosage: 15 MG/DAY/TWICE
     Route: 048
     Dates: start: 20161108, end: 20170912
  4. INCB018424 [Suspect]
     Active Substance: RUXOLITINIB
     Dosage: 10 MG, QD
     Route: 048
     Dates: start: 20170912
  5. FERRO FOLGAMMA [Concomitant]
     Indication: PROPHYLAXIS
     Dosage: 100 MG, UNK
     Route: 065
     Dates: start: 20160128, end: 20160701
  6. LIMPTAR [Concomitant]
     Active Substance: AMINOPHYLLINE\QUININE SULFATE
     Indication: MUSCLE SPASMS
     Dosage: UNK UNK, PRN
     Route: 065
     Dates: start: 20160405
  7. MAGNESIUM [Concomitant]
     Active Substance: MAGNESIUM
     Dosage: 400 MG, UNK
     Route: 065
  8. FERRO FOLGAMMA [Concomitant]
     Dosage: 100 MG, UNK
     Route: 065
     Dates: start: 20161108, end: 20170913
  9. LECANIDIPINE [Concomitant]
     Dosage: 10 MG, UNK
     Route: 065
     Dates: start: 20161108, end: 20170801
  10. LECANIDIPINE [Concomitant]
     Dosage: 20 MG, UNK
     Route: 065
     Dates: start: 20180129
  11. MAGNESIUM [Concomitant]
     Active Substance: MAGNESIUM
     Indication: MUSCLE SPASMS
     Dosage: 400 MG, UNK
     Route: 065
  12. LECANIDIPINE [Concomitant]
     Indication: HYPERTENSION
     Dosage: 10 MG, UNK
     Route: 065
     Dates: start: 20161108
  13. FERRO SANOL [Concomitant]
     Active Substance: FERROUS GLYCINE SULFATE
     Indication: MINERAL SUPPLEMENTATION
     Dosage: 100 MG, UNK
     Route: 065
     Dates: start: 20170912
  14. INCB018424 [Suspect]
     Active Substance: RUXOLITINIB
     Dosage: 10 MG/DAY/TWICE
     Route: 048
     Dates: start: 20160627, end: 20161108
  15. LECANIDIPINE [Concomitant]
     Dosage: 10 MG, UNK
     Route: 065
     Dates: end: 20170801
  16. MAGNESIUM [Concomitant]
     Active Substance: MAGNESIUM
     Dosage: 400 MG, UNK
     Route: 065
  17. LECANIDIPINE [Concomitant]
     Dosage: 10 MG, UNK
     Route: 065
     Dates: start: 20171108, end: 20180129
  18. INCB018424 [Suspect]
     Active Substance: RUXOLITINIB
     Dosage: 15 MG/DAY/TWICE
     Route: 048
     Dates: start: 20160405, end: 20160627
  19. LECANIDIPINE [Concomitant]
     Dosage: 10 MG, UNK
     Route: 065
     Dates: start: 20171108
  20. MOXIFLOXACINE [Concomitant]
     Active Substance: MOXIFLOXACIN
     Dosage: 400 MG, UNK
     Route: 065
     Dates: start: 20170608, end: 20180129

REACTIONS (6)
  - Pleural effusion [Recovering/Resolving]
  - Squamous cell carcinoma [Not Recovered/Not Resolved]
  - Lung disorder [Recovering/Resolving]
  - Splenomegaly [Not Recovered/Not Resolved]
  - Pancytopenia [Recovering/Resolving]
  - Second primary malignancy [Not Recovered/Not Resolved]

NARRATIVE: CASE EVENT DATE: 20170913
